FAERS Safety Report 17943146 (Version 1)
Quarter: 2020Q2

REPORT INFORMATION
  Report Type: Spontaneous
  Country: US (occurrence: US)
  Receive Date: 20200625
  Receipt Date: 20200625
  Transmission Date: 20200714
  Serious: No
  Sender: FDA-Public Use
  Company Number: None

PATIENT
  Age: 61 Year
  Sex: Female
  Weight: 50.1 kg

DRUGS (1)
  1. RITUXAN [Suspect]
     Active Substance: RITUXIMAB
     Indication: LYMPHOMA
     Dosage: ?          OTHER FREQUENCY:WEEKLY X4 2X/YR;?
     Dates: start: 20200610

REACTIONS (3)
  - Nausea [None]
  - Throat irritation [None]
  - Vomiting [None]

NARRATIVE: CASE EVENT DATE: 20200610
